FAERS Safety Report 8355195-4 (Version None)
Quarter: 2012Q2

REPORT INFORMATION
  Report Type: 
  Country: None (occurrence: None)
  Receive Date: 20120511
  Receipt Date: 20110627
  Transmission Date: 20120825
  Serious: No
  Sender: FDA-Public Use
  Company Number: US-TEVA-2011002363

PATIENT
  Sex: Male
  Weight: 95.34 kg

DRUGS (6)
  1. NUVIGIL [Suspect]
     Indication: FATIGUE
     Dosage: 150 MILLIGRAM;
     Route: 048
     Dates: start: 20110312, end: 20110318
  2. PROVIGIL [Suspect]
     Dates: start: 20110319
  3. GILENYA [Concomitant]
     Dates: start: 20110101
  4. SIMVASTATIN [Concomitant]
     Dates: start: 20090101
  5. AMPYRA [Concomitant]
     Dates: start: 20090901
  6. PROVIGIL [Suspect]
     Indication: FATIGUE
     Dates: end: 20110312

REACTIONS (4)
  - FEELING JITTERY [None]
  - INTENTIONAL DRUG MISUSE [None]
  - LOGORRHOEA [None]
  - EUPHORIC MOOD [None]
